FAERS Safety Report 5821809-3 (Version None)
Quarter: 2008Q3

REPORT INFORMATION
  Report Type: 
  Country: None (occurrence: None)
  Receive Date: 20080724
  Receipt Date: 20080717
  Transmission Date: 20090109
  Serious: Yes (Other)
  Sender: FDA-Public Use
  Company Number: JP-BOEHRINGER INGELHEIM GMBH, GERMANY-2008-DE-04196GD

PATIENT

DRUGS (8)
  1. DIPYRIDAMOLE [Suspect]
  2. FLUVOXAMINE MALEATE [Suspect]
     Indication: DEPRESSION
  3. FLUVOXAMINE MALEATE [Suspect]
     Indication: SENILE DEMENTIA
  4. THEOPHYLLINE [Suspect]
  5. NICERGOLINE [Suspect]
  6. CAMOSTAT MESILATE [Suspect]
  7. TEPRENONE [Suspect]
  8. PROPIVERINE HYDROCHLORIDE [Suspect]

REACTIONS (2)
  - EPILEPSY [None]
  - LOSS OF CONSCIOUSNESS [None]
